FAERS Safety Report 5138911-4 (Version None)
Quarter: 2006Q4

REPORT INFORMATION
  Report Type: 
  Country: None (occurrence: None)
  Receive Date: 20061030
  Receipt Date: 20060515
  Transmission Date: 20070319
  Serious: No
  Sender: FDA-Public Use
  Company Number: US-GLAXOSMITHKLINE-A0605620A

PATIENT
  Age: 66 Year
  Sex: Female

DRUGS (7)
  1. ADVAIR HFA [Suspect]
     Indication: ASTHMA
     Dosage: 1PUFF TWICE PER DAY
     Route: 055
     Dates: start: 20050501
  2. EVISTA [Concomitant]
  3. ZYRTEC [Concomitant]
  4. NYSTATIN [Concomitant]
  5. LEXAPRO [Concomitant]
  6. FOSAMAX [Concomitant]
  7. PROTONIX [Concomitant]

REACTIONS (1)
  - STOMATITIS [None]
